FAERS Safety Report 7755219-9 (Version None)
Quarter: 2011Q3

REPORT INFORMATION
  Report Type: 
  Country: None (occurrence: None)
  Receive Date: 20110914
  Receipt Date: 20110830
  Transmission Date: 20111222
  Serious: Yes (Other)
  Sender: FDA-Public Use
  Company Number: THQ2011A05419

PATIENT
  Age: 44 Year
  Sex: Male

DRUGS (7)
  1. SERTRALINE HYDROCHLORIDE [Concomitant]
  2. CLOXAZOLAM [Concomitant]
  3. METFORMIN HCL [Concomitant]
  4. ACTOPLUS MET [Suspect]
     Indication: DIABETES MELLITUS
     Dosage: (PIOGLITAZONE HYDROCHLORIDE 15 MG/METFORMIN HYDROCHLORIDE 850 MG 1 IN 1 D) PER ORAL
     Route: 048
     Dates: start: 20081219, end: 20110818
  5. BUPROPION HYDROCHLORIDE [Concomitant]
  6. GLIMEPIRIDE [Concomitant]
  7. INSULIN GLARGINE [Concomitant]

REACTIONS (1)
  - BLADDER NEOPLASM [None]
